FAERS Safety Report 19244679 (Version 1)
Quarter: 2021Q2

REPORT INFORMATION
  Report Type: Spontaneous
  Country: US (occurrence: US)
  Receive Date: 20210511
  Receipt Date: 20210511
  Transmission Date: 20210717
  Serious: Yes (Hospitalization, Other)
  Sender: FDA-Public Use
  Company Number: US-SUNOVION-2021SUN001713

PATIENT
  Sex: Female

DRUGS (1)
  1. LONHALA MAGNAIR [Suspect]
     Active Substance: GLYCOPYRROLATE
     Dosage: UNK
     Route: 055

REACTIONS (9)
  - Cerebrovascular accident [Unknown]
  - Gait disturbance [Unknown]
  - Speech disorder [Unknown]
  - Wheezing [Not Recovered/Not Resolved]
  - Product dose omission issue [Unknown]
  - Lung disorder [Unknown]
  - Device issue [Unknown]
  - Device breakage [Unknown]
  - Device material issue [Unknown]
